FAERS Safety Report 6831038-2 (Version None)
Quarter: 2010Q3

REPORT INFORMATION
  Report Type: 
  Country: None (occurrence: None)
  Receive Date: 20100706
  Receipt Date: 20100622
  Transmission Date: 20110219
  Serious: Yes (Hospitalization)
  Sender: FDA-Public Use
  Company Number: IPC201006-000177

PATIENT
  Age: 70 Year
  Sex: Male

DRUGS (1)
  1. ATENOLOL [Suspect]
     Indication: BLOOD PRESSURE
     Dosage: QD, ORAL
     Route: 048
     Dates: start: 20100101

REACTIONS (7)
  - BLOOD PRESSURE DECREASED [None]
  - DIZZINESS [None]
  - DRUG INEFFECTIVE [None]
  - HEART RATE INCREASED [None]
  - IRON DEFICIENCY ANAEMIA [None]
  - PRODUCT SUBSTITUTION ISSUE [None]
  - SELF-MEDICATION [None]
